FAERS Safety Report 7623875-1 (Version None)
Quarter: 2011Q3

REPORT INFORMATION
  Report Type: 
  Country: None (occurrence: None)
  Receive Date: 20110720
  Receipt Date: 20110714
  Transmission Date: 20111222
  Serious: Yes (Death, Life-Threatening, Disabling)
  Sender: FDA-Public Use
  Company Number: JP-JNJFOC-20100903543

PATIENT
  Sex: Female
  Weight: 48 kg

DRUGS (28)
  1. DOXIL [Suspect]
     Dosage: CYCLE 6
     Route: 042
     Dates: start: 20100105, end: 20100105
  2. DOXIL [Suspect]
     Dosage: CYCLE 7
     Route: 042
     Dates: start: 20100302, end: 20100302
  3. ALLOPURINOL [Concomitant]
     Indication: PROPHYLAXIS
     Route: 048
     Dates: start: 20100105, end: 20100105
  4. ALLOPURINOL [Concomitant]
     Route: 048
     Dates: start: 20090630, end: 20100703
  5. CLOBETASOL PROPIONATE [Concomitant]
     Indication: RASH
     Route: 061
     Dates: start: 20090717, end: 20090817
  6. DOXIL [Suspect]
     Dosage: CYCLE 3
     Route: 042
     Dates: start: 20090818, end: 20090818
  7. KETOPROFEN [Concomitant]
     Indication: BACK PAIN
     Route: 003
     Dates: start: 20080616
  8. BETAMETHASONE [Concomitant]
     Route: 048
     Dates: start: 20090817, end: 20090817
  9. HACHIAZULE [Concomitant]
     Indication: PROPHYLAXIS
     Route: 049
     Dates: start: 20090529, end: 20090817
  10. BETAMETHASONE [Concomitant]
     Route: 048
     Dates: start: 20091109, end: 20091109
  11. DOXIL [Suspect]
     Dosage: CYCLE 5
     Route: 042
     Dates: start: 20091110, end: 20091110
  12. BETAMETHASONE [Concomitant]
     Indication: PROPHYLAXIS
     Route: 048
     Dates: start: 20100104, end: 20100104
  13. BETAMETHASONE [Concomitant]
     Route: 048
     Dates: start: 20090629, end: 20100629
  14. DOXIL [Suspect]
     Indication: OVARIAN CANCER RECURRENT
     Dosage: CYCLE 4
     Route: 042
     Dates: start: 20090929, end: 20090929
  15. DOXIL [Suspect]
     Dosage: CYCLE 8
     Route: 042
     Dates: start: 20100420, end: 20100420
  16. ALLOPURINOL [Concomitant]
     Route: 048
     Dates: start: 20091110, end: 20091110
  17. ALLOPURINOL [Concomitant]
     Route: 048
     Dates: start: 20090526, end: 20100529
  18. ALLOPURINOL [Concomitant]
     Route: 048
     Dates: start: 20090818, end: 20090821
  19. ALLOPURINOL [Concomitant]
     Route: 048
     Dates: start: 20090929, end: 20090929
  20. HACHIAZULE [Concomitant]
     Route: 049
     Dates: start: 20100420, end: 20100426
  21. WHITE PETROLATUM [Concomitant]
     Indication: HERPES ZOSTER
     Route: 061
     Dates: start: 20090918, end: 20090923
  22. SHAKUYAKUKANZOUTOU [Concomitant]
     Indication: BACK PAIN
     Route: 048
     Dates: start: 20091110
  23. DESPA [Concomitant]
     Indication: STOMATITIS
     Route: 049
     Dates: start: 20090714, end: 20090817
  24. VALTREX [Concomitant]
     Indication: HERPES ZOSTER
     Route: 048
     Dates: start: 20090918, end: 20090923
  25. DOXIL [Suspect]
     Dosage: CYCLE 2
     Route: 042
     Dates: start: 20090630, end: 20090630
  26. DOXIL [Suspect]
     Dosage: CYCLE 1
     Route: 042
     Dates: start: 20090526, end: 20090526
  27. BETAMETHASONE [Concomitant]
     Route: 048
     Dates: start: 20090526, end: 20100526
  28. BETAMETHASONE [Concomitant]
     Route: 048
     Dates: start: 20090928, end: 20090928

REACTIONS (3)
  - PLATELET COUNT DECREASED [None]
  - MYELODYSPLASTIC SYNDROME [None]
  - OVARIAN CANCER RECURRENT [None]
